FAERS Safety Report 15285057 (Version 1)
Quarter: 2018Q3

REPORT INFORMATION
  Report Type: Spontaneous
  Country: US (occurrence: US)
  Receive Date: 20180816
  Receipt Date: 20180816
  Transmission Date: 20181010
  Serious: No
  Sender: FDA-Public Use
  Company Number: US-ENDO PHARMACEUTICALS INC-2018-036288

PATIENT
  Sex: Male

DRUGS (2)
  1. OXYCODONE/ACETAMINOPHEN TABLETS 7.5MG/325MG [Suspect]
     Active Substance: ACETAMINOPHEN\OXYCODONE HYDROCHLORIDE
     Indication: PRODUCT USED FOR UNKNOWN INDICATION
     Dosage: 7.5/325 MG, UNK
     Route: 048
  2. OXYCODONE/ACETAMINOPHEN TABLETS 7.5MG/325MG [Suspect]
     Active Substance: ACETAMINOPHEN\OXYCODONE HYDROCHLORIDE
     Dosage: 10/325 MG, UNK
     Route: 048

REACTIONS (1)
  - Abdominal discomfort [Unknown]
